FAERS Safety Report 5647083-9 (Version None)
Quarter: 2008Q1

REPORT INFORMATION
  Report Type: 
  Country: None (occurrence: None)
  Receive Date: 20080228
  Receipt Date: 20080228
  Transmission Date: 20080703
  Serious: Yes (Hospitalization)
  Sender: FDA-Public Use
  Company Number: None

PATIENT
  Age: 39 Year
  Sex: Female
  Weight: 72.5755 kg

DRUGS (1)
  1. ZELNORM [Suspect]
     Indication: NERVE INJURY
     Dosage: 3    4 TIMES PER DAY  PO
     Route: 048
     Dates: start: 20050105, end: 20061219

REACTIONS (1)
  - GASTRIC ULCER [None]
